FAERS Safety Report 7911978-3 (Version None)
Quarter: 2011Q4

REPORT INFORMATION
  Report Type: 
  Country: None (occurrence: None)
  Receive Date: 20111114
  Receipt Date: 20111102
  Transmission Date: 20120403
  Serious: Yes (Hospitalization)
  Sender: FDA-Public Use
  Company Number: NL-ROCHE-1008717

PATIENT
  Age: 78 Year
  Sex: Male
  Weight: 67 kg

DRUGS (1)
  1. VEMURAFENIB [Suspect]
     Indication: MALIGNANT MELANOMA
     Route: 048
     Dates: start: 20110819

REACTIONS (1)
  - DYSPNOEA [None]
